FAERS Safety Report 25076079 (Version 2)
Quarter: 2025Q2

REPORT INFORMATION
  Report Type: Spontaneous
  Country: CN (occurrence: CN)
  Receive Date: 20250313
  Receipt Date: 20250516
  Transmission Date: 20250717
  Serious: Yes (Death, Other)
  Sender: INNOVIVA
  Company Number: CN-INNOVIVA SPECIALTY THERAPEUTICS-2025-ISTX-000019

PATIENT

DRUGS (2)
  1. XACDURO [Suspect]
     Active Substance: DURLOBACTAM SODIUM\SULBACTAM SODIUM
     Indication: Acinetobacter infection
     Dosage: 1G/1G (2 G), Q12H (BID)
     Route: 041
     Dates: start: 20250221, end: 20250223
  2. XACDURO [Suspect]
     Active Substance: DURLOBACTAM SODIUM\SULBACTAM SODIUM
     Dosage: 1G/1G (2 G), QD
     Route: 041
     Dates: start: 20250224, end: 20250303

REACTIONS (4)
  - Death [Fatal]
  - Cardiac disorder [Unknown]
  - Blood pressure abnormal [Unknown]
  - Condition aggravated [Unknown]

NARRATIVE: CASE EVENT DATE: 20250303
